FAERS Safety Report 8330904-9 (Version None)
Quarter: 2012Q2

REPORT INFORMATION
  Report Type: 
  Country: None (occurrence: None)
  Receive Date: 20120502
  Receipt Date: 20120427
  Transmission Date: 20120825
  Serious: Yes (Other)
  Sender: FDA-Public Use
  Company Number: ES-PFIZER INC-2012105524

PATIENT
  Sex: Female

DRUGS (2)
  1. LYRICA [Suspect]
     Indication: PAIN
     Dosage: 1 DF, 2X/DAY
     Dates: start: 20120101
  2. DONEPEZIL [Concomitant]

REACTIONS (6)
  - HYPOGLYCAEMIA [None]
  - FLUID RETENTION [None]
  - VISION BLURRED [None]
  - WEIGHT INCREASED [None]
  - KNEE OPERATION [None]
  - OEDEMA PERIPHERAL [None]
